FAERS Safety Report 5746671-9 (Version None)
Quarter: 2008Q2

REPORT INFORMATION
  Report Type: 
  Country: None (occurrence: None)
  Receive Date: 20080522
  Receipt Date: 20070416
  Transmission Date: 20081010
  Serious: Yes (Death)
  Sender: FDA-Public Use
  Company Number: US-ASTRAZENECA-2007UW06375

PATIENT
  Age: 37 Year
  Sex: Female
  Weight: 113.6 kg

DRUGS (7)
  1. SEROQUEL [Suspect]
     Indication: BIPOLAR DISORDER
     Route: 048
     Dates: start: 20020601, end: 20060418
  2. SEROQUEL [Suspect]
     Indication: DEPRESSION
     Route: 048
     Dates: start: 20020601, end: 20060418
  3. ABILIFY [Concomitant]
     Dates: start: 20050719
  4. RISPERDAL [Concomitant]
     Dates: start: 20040428, end: 20040809
  5. IMIPRAMINE [Concomitant]
     Dates: start: 20000801, end: 20010104
  6. IMIPRAMINE [Concomitant]
     Dates: start: 20021029, end: 20030301
  7. IMIPRAMINE [Concomitant]
     Dates: start: 20050926, end: 20060503

REACTIONS (2)
  - DIABETES MELLITUS [None]
  - DRUG TOXICITY [None]
